FAERS Safety Report 9246931 (Version 1)
Quarter: 2013Q2

REPORT INFORMATION
  Report Type: Spontaneous
  Country: US (occurrence: US)
  Receive Date: 20130422
  Receipt Date: 20130422
  Transmission Date: 20140414
  Serious: No
  Sender: FDA-Public Use
  Company Number: US-ASTRAZENECA-2013SE05965

PATIENT
  Age: 74 Year
  Sex: Female
  Weight: 66.2 kg

DRUGS (2)
  1. NEXIUM [Suspect]
     Indication: GASTROOESOPHAGEAL REFLUX DISEASE
     Route: 048
     Dates: start: 2012
  2. LOSARTAN/HCTZ [Concomitant]
     Indication: HYPERTENSION
     Dosage: 100/25 MG DAILY
     Route: 048
     Dates: start: 2008

REACTIONS (3)
  - Abdominal pain upper [Not Recovered/Not Resolved]
  - Drug dose omission [Unknown]
  - Intentional drug misuse [Unknown]
